FAERS Safety Report 14540144 (Version 1)
Quarter: 2018Q1

REPORT INFORMATION
  Report Type: Spontaneous
  Country: JP (occurrence: GB)
  Receive Date: 20180216
  Receipt Date: 20180216
  Transmission Date: 20180509
  Serious: Yes (Hospitalization, Other)
  Sender: FDA-Public Use
  Company Number: GB-TEVA-2018-GB-857937

PATIENT
  Age: 93 Year
  Sex: Female

DRUGS (6)
  1. ENOXAPARIN SODIUM. [Concomitant]
     Active Substance: ENOXAPARIN SODIUM
     Dosage: 20 MILLIGRAM DAILY; 20.000 MILLIGRAM, DAY
     Dates: start: 20171015, end: 20171126
  2. FEBURIC [Suspect]
     Active Substance: FEBUXOSTAT
     Dosage: UNK
  3. FERROUS FUMARATE [Concomitant]
     Active Substance: FERROUS FUMARATE
     Dosage: 630 MILLIGRAM DAILY; 630.000 MILLIGRAM, DAY
     Route: 048
     Dates: start: 20170804
  4. ALENDRONATE SODIUM. [Suspect]
     Active Substance: ALENDRONATE SODIUM
     Indication: OSTEOPOROSIS
     Dosage: UNK
     Route: 048
     Dates: start: 20041018, end: 20171025
  5. ALLOPURINOL. [Concomitant]
     Active Substance: ALLOPURINOL
  6. ADCAL-D3 [Concomitant]
     Active Substance: CALCIUM CARBONATE\CHOLECALCIFEROL
     Dosage: 4 DOSAGE FORMS DAILY;
     Route: 048
     Dates: start: 20041018

REACTIONS (2)
  - Hip fracture [Recovered/Resolved with Sequelae]
  - Anaemia [Unknown]

NARRATIVE: CASE EVENT DATE: 2017
